FAERS Safety Report 18124293 (Version 1)
Quarter: 2020Q3

REPORT INFORMATION
  Report Type: Spontaneous
  Country: IT (occurrence: IT)
  Receive Date: 20200807
  Receipt Date: 20200807
  Transmission Date: 20201103
  Serious: Yes (Other)
  Sender: FDA-Public Use
  Company Number: IT-MYLANLABS-2020M1069939

PATIENT
  Age: 3 Year

DRUGS (1)
  1. BETAMETHASONE. [Suspect]
     Active Substance: BETAMETHASONE
     Indication: HENOCH-SCHONLEIN PURPURA
     Dosage: DOSE: 0.1?0.2 MG/KG/DAY
     Route: 048

REACTIONS (1)
  - Drug ineffective [Unknown]
